FAERS Safety Report 17584095 (Version 1)
Quarter: 2020Q1

REPORT INFORMATION
  Report Type: Spontaneous
  Country: DE (occurrence: DE)
  Receive Date: 20200326
  Receipt Date: 20200326
  Transmission Date: 20200409
  Serious: Yes (Hospitalization)
  Sender: FDA-Public Use
  Company Number: DE-BAYER-2020-048401

PATIENT
  Age: 47 Year
  Sex: Female
  Weight: 80 kg

DRUGS (1)
  1. GADOVIST [Suspect]
     Active Substance: GADOBUTROL
     Indication: HAEMATURIA
     Dosage: 7.5 ML, ONCE
     Dates: start: 20200319

REACTIONS (4)
  - Nausea [None]
  - Chills [None]
  - Extrasystoles [None]
  - Dizziness [None]

NARRATIVE: CASE EVENT DATE: 20200319
